FAERS Safety Report 8237433 (Version 4)
Quarter: 2013Q2

REPORT INFORMATION
  Report Type: Other
  Country: SA (occurrence: SA)
  Receive Date: 20111109
  Receipt Date: 20130625
  Transmission Date: 20140414
  Serious: Yes (Other)
  Sender: FDA-Public Use
  Company Number: SA-BRISTOL-MYERS SQUIBB COMPANY-16219412

PATIENT
  Age: 44 Year
  Sex: Female

DRUGS (6)
  1. METFORMIN HCL [Suspect]
     Indication: TYPE 2 DIABETES MELLITUS
     Dosage: ONE MONTH AGO
  2. PREDNISOLONE [Interacting]
  3. TRAMADOL [Concomitant]
     Dosage: AS NECESSARY.
  4. CALCIUM [Concomitant]
  5. HYDROXYCHLOROQUINE [Concomitant]
  6. ASPIRIN [Concomitant]

REACTIONS (3)
  - Drug-induced liver injury [Recovered/Resolved]
  - Alanine aminotransferase increased [Recovered/Resolved]
  - Drug interaction [Unknown]
